FAERS Safety Report 11525319 (Version 1)
Quarter: 2015Q3

REPORT INFORMATION
  Report Type: Spontaneous
  Country: US (occurrence: US)
  Receive Date: 20150918
  Receipt Date: 20150918
  Transmission Date: 20151125
  Serious: Yes (Hospitalization)
  Sender: FDA-Public Use
  Company Number: US-TEVA-594495USA

PATIENT
  Age: 60 Year
  Sex: Male

DRUGS (3)
  1. CLONAZEPAM. [Suspect]
     Active Substance: CLONAZEPAM
     Indication: OVERDOSE
     Route: 048
  2. WARFARIN [Suspect]
     Active Substance: WARFARIN
     Indication: OVERDOSE
     Route: 048
  3. DIGOXIN. [Suspect]
     Active Substance: DIGOXIN
     Indication: OVERDOSE
     Route: 048

REACTIONS (3)
  - Coagulopathy [Recovered/Resolved]
  - Unresponsive to stimuli [Unknown]
  - Overdose [Recovered/Resolved]
